FAERS Safety Report 6354586-0 (Version None)
Quarter: 2009Q3

REPORT INFORMATION
  Report Type: 
  Country: None (occurrence: None)
  Receive Date: 20090914
  Receipt Date: 20090903
  Transmission Date: 20100115
  Serious: Yes (Other)
  Sender: FDA-Public Use
  Company Number: GB-JNJFOC-20090805737

PATIENT
  Sex: Male
  Weight: 70 kg

DRUGS (6)
  1. PREZISTA [Suspect]
     Indication: HIV INFECTION
     Route: 048
  2. RITONAVIR [Suspect]
     Indication: HIV INFECTION
     Route: 048
  3. COTRIM [Concomitant]
     Indication: PNEUMOCYSTIS JIROVECI PNEUMONIA
  4. ACYCLOVIR [Concomitant]
     Indication: HERPES SIMPLEX
  5. ZOPICLONE [Concomitant]
     Indication: INSOMNIA
  6. DICLOFENAC SODIUM [Concomitant]

REACTIONS (2)
  - INSOMNIA [None]
  - MEMORY IMPAIRMENT [None]
